FAERS Safety Report 9626943 (Version 1)
Quarter: 2013Q4

REPORT INFORMATION
  Report Type: Spontaneous
  Country: US (occurrence: US)
  Receive Date: 20131016
  Receipt Date: 20131016
  Transmission Date: 20140711
  Serious: Yes (Hospitalization)
  Sender: FDA-Public Use
  Company Number: US-PFIZER INC-2013292675

PATIENT
  Age: 9 Year
  Sex: Male

DRUGS (7)
  1. DILANTIN-125 [Suspect]
     Indication: CONVULSION
     Dosage: UNK
  2. DILANTIN-125 [Suspect]
     Dosage: 4.75 MG/KG, DAILY
     Dates: start: 1972
  3. DILANTIN-125 [Suspect]
     Dosage: 150 MG, 2X/DAY (9.55 MG/KG/DAY)
     Dates: start: 1973
  4. PHENOBARBITAL [Concomitant]
     Indication: CONVULSION
     Dosage: UNK
     Route: 048
  5. PHENOBARBITAL [Concomitant]
     Dosage: 60 MG, 2X/DAY (3.82MG/KG/DAY)
     Route: 048
  6. ETHOSUXIMIDE [Concomitant]
     Indication: CONVULSION
     Dosage: UNK
  7. ETHOSUXIMIDE [Concomitant]
     Dosage: 250 MG, 3X/DAY (23.9 MG/KG/DAY)

REACTIONS (5)
  - Toxicity to various agents [Unknown]
  - Choreoathetosis [Recovered/Resolved]
  - Anticonvulsant drug level increased [Recovered/Resolved]
  - Ataxia [Recovered/Resolved]
  - Dysarthria [Recovered/Resolved]
